FAERS Safety Report 4696339-5 (Version None)
Quarter: 2005Q2

REPORT INFORMATION
  Report Type: 
  Country: None (occurrence: None)
  Receive Date: 20050620
  Receipt Date: 20050607
  Transmission Date: 20051028
  Serious: Yes (Other)
  Sender: FDA-Public Use
  Company Number: 2005061117

PATIENT
  Age: 73 Year
  Sex: Female
  Weight: 74.8435 kg

DRUGS (4)
  1. BEXTRA [Suspect]
     Indication: ILL-DEFINED DISORDER
     Dosage: 20 MG (20 MG, 1 IN 1 D), ORAL
     Route: 048
  2. LIPITOR [Concomitant]
  3. ALL OTHER THERAPEUTIC PRODUCTS (ALL OTHER THERAPEUTIC PRODUCTS) [Concomitant]
  4. ATENOLOL [Concomitant]

REACTIONS (5)
  - CONTUSION [None]
  - ERYTHEMA [None]
  - GLUCOSE TOLERANCE IMPAIRED [None]
  - SKIN DISCOLOURATION [None]
  - SKIN HAEMORRHAGE [None]
